FAERS Safety Report 9915312 (Version 1)
Quarter: 2014Q1

REPORT INFORMATION
  Report Type: Report from Study
  Country: US (occurrence: US)
  Receive Date: 20140221
  Receipt Date: 20140221
  Transmission Date: 20141002
  Serious: Yes (Other)
  Sender: FDA-Public Use
  Company Number: US-ROCHE-1347548

PATIENT
  Age: 16 Year
  Sex: Male
  Weight: 41.1 kg

DRUGS (4)
  1. CELLCEPT [Suspect]
     Indication: PRODUCT USED FOR UNKNOWN INDICATION
     Route: 048
  2. LOSARTAN [Concomitant]
     Route: 048
  3. TACROLIMUS [Concomitant]
     Route: 048
  4. PREDNISONE [Concomitant]
     Route: 048

REACTIONS (6)
  - Blood creatinine increased [Unknown]
  - Blood urea increased [Unknown]
  - Increased tendency to bruise [Unknown]
  - Pyrexia [Recovered/Resolved]
  - Cough [Recovering/Resolving]
  - Pulmonary congestion [Recovering/Resolving]
